FAERS Safety Report 5778115-5 (Version None)
Quarter: 2008Q2

REPORT INFORMATION
  Report Type: 
  Country: None (occurrence: None)
  Receive Date: 20080617
  Receipt Date: 20080617
  Transmission Date: 20081010
  Serious: No
  Sender: FDA-Public Use
  Company Number: None

PATIENT
  Age: 32 Year
  Sex: Female
  Weight: 47.6277 kg

DRUGS (1)
  1. BOTOX [Suspect]
     Indication: MOVEMENT DISORDER
     Dates: start: 20060515, end: 20061220

REACTIONS (10)
  - ASTHENIA [None]
  - DYSPHAGIA [None]
  - DYSPNOEA [None]
  - EXERCISE TOLERANCE DECREASED [None]
  - FACIAL PALSY [None]
  - INFLUENZA LIKE ILLNESS [None]
  - MUSCLE INJURY [None]
  - MUSCULAR WEAKNESS [None]
  - NERVE DEGENERATION [None]
  - ULCER [None]
